FAERS Safety Report 4484060-8 (Version None)
Quarter: 2004Q4

REPORT INFORMATION
  Report Type: 
  Country: None (occurrence: None)
  Receive Date: 20041025
  Receipt Date: 20041015
  Transmission Date: 20050328
  Serious: Yes (Hospitalization)
  Sender: FDA-Public Use
  Company Number: DE-MERCK-0410DEU00534

PATIENT
  Age: 59 Year
  Sex: Male

DRUGS (1)
  1. VIOXX [Suspect]
     Indication: ARTHROPATHY
     Route: 048
     Dates: start: 20020101

REACTIONS (11)
  - ABDOMINAL PAIN UPPER [None]
  - ARTHROPATHY [None]
  - CARDIOVASCULAR DISORDER [None]
  - COLONIC POLYP [None]
  - DIZZINESS [None]
  - INTESTINAL HAEMORRHAGE [None]
  - JOINT EFFUSION [None]
  - PALPITATIONS [None]
  - POLYNEUROPATHY IDIOPATHIC PROGRESSIVE [None]
  - STOMACH DISCOMFORT [None]
  - TENDONITIS [None]
